FAERS Safety Report 6210634-X (Version None)
Quarter: 2009Q2

REPORT INFORMATION
  Report Type: 
  Country: None (occurrence: None)
  Receive Date: 20090601
  Receipt Date: 20090519
  Transmission Date: 20091009
  Serious: Yes (Death)
  Sender: FDA-Public Use
  Company Number: US-PFIZER INC-2009194574

PATIENT
  Sex: Female
  Weight: 45.132 kg

DRUGS (5)
  1. SUTENT [Suspect]
     Indication: BREAST CANCER
     Dosage: 37.5 MG, 1X/DAY
     Route: 048
     Dates: start: 20070722, end: 20081013
  2. IXABEPILONE [Concomitant]
     Route: 042
     Dates: start: 20080401, end: 20080513
  3. TOPOTECAN [Concomitant]
     Route: 042
     Dates: start: 20080616, end: 20090130
  4. ZOMETA [Concomitant]
     Dates: start: 20080617, end: 20090116
  5. PACLITAXEL [Concomitant]
     Dosage: UNK
     Route: 042
     Dates: start: 20080616, end: 20090130

REACTIONS (2)
  - BREAST CANCER METASTATIC [None]
  - DISEASE PROGRESSION [None]
